FAERS Safety Report 8838180 (Version 2)
Quarter: 2013Q4

REPORT INFORMATION
  Report Type: Spontaneous
  Country: US (occurrence: US)
  Receive Date: 20121012
  Receipt Date: 20131009
  Transmission Date: 20140711
  Serious: Yes (Other)
  Sender: FDA-Public Use
  Company Number: US-ROCHE-1144683

PATIENT
  Age: 64 Year
  Sex: 0

DRUGS (5)
  1. ZELBORAF [Suspect]
     Indication: METASTATIC MALIGNANT MELANOMA
     Route: 065
  2. LISINOPRIL [Concomitant]
     Route: 065
  3. AMLODIPINE [Concomitant]
     Route: 065
  4. HCTZ [Concomitant]
     Route: 065
  5. PRAVASTATIN [Concomitant]
     Route: 065

REACTIONS (3)
  - Drug reaction with eosinophilia and systemic symptoms [Unknown]
  - Pyrexia [Unknown]
  - Rash [Unknown]
